FAERS Safety Report 8175001-0 (Version None)
Quarter: 2012Q1

REPORT INFORMATION
  Report Type: 
  Country: None (occurrence: None)
  Receive Date: 20120229
  Receipt Date: 20120220
  Transmission Date: 20120608
  Serious: Yes (Other)
  Sender: FDA-Public Use
  Company Number: PHHY2012BG016120

PATIENT
  Age: 73 Year
  Sex: Male

DRUGS (1)
  1. ZOMETA [Suspect]
     Indication: PROSTATE CANCER METASTATIC
     Dosage: 4 MG, QMO

REACTIONS (8)
  - PAIN IN JAW [None]
  - TOOTH LOSS [None]
  - EXPOSED BONE IN JAW [None]
  - MUCOSAL HYPERAEMIA [None]
  - ORAL DISORDER [None]
  - TOOTHACHE [None]
  - PURULENT DISCHARGE [None]
  - OSTEONECROSIS OF JAW [None]
